FAERS Safety Report 8732373 (Version 2)
Quarter: 2015Q3

REPORT INFORMATION
  Report Type: Spontaneous
  Country: JP (occurrence: JP)
  Receive Date: 20120820
  Receipt Date: 20150902
  Transmission Date: 20151125
  Serious: Yes (Hospitalization)
  Sender: FDA-Public Use
  Company Number: JP-GLAXOSMITHKLINE-B0823411A

PATIENT
  Age: 6 Decade
  Sex: Male

DRUGS (2)
  1. LAMOTRIGINE. [Suspect]
     Active Substance: LAMOTRIGINE
     Dosage: 25 MG, TID
     Route: 048
     Dates: start: 20120727, end: 20120727
  2. LAMOTRIGINE. [Suspect]
     Active Substance: LAMOTRIGINE
     Indication: BIPOLAR DISORDER
     Dosage: 50 MG, 1D
     Route: 048
     Dates: end: 20120726

REACTIONS (5)
  - C-reactive protein increased [Unknown]
  - Viral infection [Unknown]
  - Rash [Recovered/Resolved]
  - Pyrexia [Recovered/Resolved]
  - Nasopharyngitis [Unknown]

NARRATIVE: CASE EVENT DATE: 20120727
